FAERS Safety Report 15588013 (Version 11)
Quarter: 2019Q2

REPORT INFORMATION
  Report Type: Report from Study
  Country: US (occurrence: US)
  Receive Date: 20181105
  Receipt Date: 20190626
  Transmission Date: 20190711
  Serious: Yes (Hospitalization)
  Sender: FDA-Public Use
  Company Number: US-ACTELION-A-NJ2018-181255

PATIENT
  Age: 37 Year
  Sex: Female

DRUGS (6)
  1. OPSUMIT [Suspect]
     Active Substance: MACITENTAN
     Indication: PULMONARY ARTERIAL HYPERTENSION
     Dosage: 10 MG, QD
     Route: 048
     Dates: start: 20140326
  2. REMODULIN [Suspect]
     Active Substance: TREPROSTINIL
     Dosage: 136 NG/KG, PER MIN
     Route: 065
  3. REMODULIN [Suspect]
     Active Substance: TREPROSTINIL
     Indication: PRODUCT USED FOR UNKNOWN INDICATION
     Dosage: 121 NG/KG, PER MIN
     Route: 058
  4. TADALAFIL. [Concomitant]
     Active Substance: TADALAFIL
  5. ADCIRCA [Concomitant]
     Active Substance: TADALAFIL
     Dosage: 40 MG, UNK
     Route: 048
  6. ZYRTEC [Concomitant]
     Active Substance: CETIRIZINE HYDROCHLORIDE

REACTIONS (27)
  - Small intestinal obstruction [Recovered/Resolved]
  - Oedema peripheral [Unknown]
  - Wound drainage [Unknown]
  - Wound [Unknown]
  - Dizziness [Unknown]
  - Scratch [Unknown]
  - Hernia repair [Recovered/Resolved]
  - Weight increased [Unknown]
  - Pruritus [Recovering/Resolving]
  - Application site dermatitis [Unknown]
  - Application site pruritus [Unknown]
  - Secretion discharge [Recovering/Resolving]
  - Catheter site haemorrhage [Not Recovered/Not Resolved]
  - Catheter site rash [Not Recovered/Not Resolved]
  - Abdominal pain [Unknown]
  - Erythema [Recovering/Resolving]
  - Incarcerated umbilical hernia [Recovered/Resolved]
  - Platelet count decreased [Unknown]
  - Proteinuria [Unknown]
  - Dermatitis contact [Unknown]
  - Catheter site discharge [Unknown]
  - Catheter site pruritus [Recovering/Resolving]
  - Catheter site irritation [Unknown]
  - Hospitalisation [Unknown]
  - Epistaxis [Recovered/Resolved]
  - Skin disorder [Unknown]
  - Catheter site erythema [Recovering/Resolving]

NARRATIVE: CASE EVENT DATE: 20181026
